FAERS Safety Report 9500404 (Version 1)
Quarter: 2013Q3

REPORT INFORMATION
  Report Type: Spontaneous
  Country: US (occurrence: US)
  Receive Date: 20130905
  Receipt Date: 20130905
  Transmission Date: 20140515
  Serious: Yes (Other)
  Sender: FDA-Public Use
  Company Number: US-MYLANLABS-2013S1019133

PATIENT
  Age: 55 Year
  Sex: Male

DRUGS (3)
  1. CYCLOBENZAPRINE [Suspect]
     Indication: PAIN
     Route: 065
  2. OXYCODONE [Concomitant]
     Indication: PAIN
     Dosage: LONG-ACTING FORMULATION [DOSAGE NOT STATED]
     Route: 065
  3. OXYCODONE [Concomitant]
     Indication: PAIN
     Dosage: SHORT-ACTING FORMULATION [DOSAGE NOT STATED]
     Route: 065

REACTIONS (3)
  - Psychotic disorder [Recovered/Resolved]
  - Myoclonus [Recovered/Resolved]
  - Dystonia [Recovered/Resolved]
